FAERS Safety Report 19372943 (Version 2)
Quarter: 2021Q2

REPORT INFORMATION
  Report Type: Spontaneous
  Country: DE (occurrence: DE)
  Receive Date: 20210603
  Receipt Date: 20210605
  Transmission Date: 20210717
  Serious: Yes (Other)
  Sender: FDA-Public Use
  Company Number: DE-ROCHE-2838060

PATIENT
  Sex: Female

DRUGS (4)
  1. OCREVUS [Suspect]
     Active Substance: OCRELIZUMAB
     Indication: MULTIPLE SCLEROSIS
     Dosage: 2 TIMES
     Route: 065
     Dates: start: 202011, end: 202011
  2. COVID?19 VACCINE NOS. [Suspect]
     Active Substance: COVID-19 VACCINE NOS
     Indication: PRODUCT USED FOR UNKNOWN INDICATION
     Route: 065
  3. OCREVUS [Suspect]
     Active Substance: OCRELIZUMAB
     Route: 065
     Dates: start: 202105
  4. COMIRNATY [Suspect]
     Active Substance: TOZINAMERAN
     Indication: MULTIPLE SCLEROSIS
     Route: 065

REACTIONS (7)
  - CD4 lymphocytes decreased [Unknown]
  - Lymphocyte count decreased [Unknown]
  - Herpes zoster [Unknown]
  - Magnetic resonance imaging abnormal [Unknown]
  - Paresis [Unknown]
  - Headache [Recovered/Resolved]
  - Multiple sclerosis [Recovered/Resolved]
